FAERS Safety Report 7576957-7 (Version None)
Quarter: 2011Q2

REPORT INFORMATION
  Report Type: 
  Country: None (occurrence: None)
  Receive Date: 20110628
  Receipt Date: 20110602
  Transmission Date: 20111010
  Serious: Yes (Other)
  Sender: FDA-Public Use
  Company Number: US-BAYER-201028091NA

PATIENT
  Age: 23 Year
  Sex: Female
  Weight: 56.689 kg

DRUGS (6)
  1. MIDRIN [Concomitant]
     Dosage: UNK
     Dates: start: 20070516
  2. NASONEX [Concomitant]
     Dosage: UNK
     Dates: start: 20070516
  3. YAZ [Suspect]
     Dosage: UNK UNK, UNK
     Route: 048
     Dates: start: 20060801, end: 20080601
  4. ZYRTEC [Concomitant]
     Dosage: UNK
     Dates: start: 20070516
  5. PROTONIX [Concomitant]
     Dosage: UNK
     Dates: start: 20070525
  6. IBUPROFEN [Concomitant]
     Dosage: UNK
     Dates: start: 20060821

REACTIONS (4)
  - PAIN [None]
  - CHOLELITHIASIS [None]
  - CHOLECYSTITIS CHRONIC [None]
  - POST CHOLECYSTECTOMY SYNDROME [None]
